FAERS Safety Report 5325010-1 (Version None)
Quarter: 2007Q2

REPORT INFORMATION
  Report Type: 
  Country: None (occurrence: None)
  Receive Date: 20070515
  Receipt Date: 20070504
  Transmission Date: 20071010
  Serious: Yes (Other)
  Sender: FDA-Public Use
  Company Number: CH-JNJFOC-20070501771

PATIENT
  Sex: Male

DRUGS (4)
  1. LYRINEL [Suspect]
     Indication: DRUG USE FOR UNKNOWN INDICATION
     Route: 048
  2. ATENIL [Concomitant]
     Route: 065
  3. FLUANXOL [Concomitant]
     Route: 065
  4. QUILONORM [Concomitant]
     Route: 065

REACTIONS (1)
  - PSYCHOTIC DISORDER [None]
